FAERS Safety Report 25593142 (Version 1)
Quarter: 2025Q3

REPORT INFORMATION
  Report Type: Spontaneous
  Country: EU (occurrence: EU)
  Receive Date: 20250722
  Receipt Date: 20250722
  Transmission Date: 20251021
  Serious: Yes (Hospitalization, Other)
  Sender: DAIICHI
  Company Number: EU-DSJP-DS-2025-154129-DE

PATIENT
  Age: 77 Year
  Sex: Female
  Weight: 116 kg

DRUGS (1)
  1. EDOXABAN TOSYLATE [Suspect]
     Active Substance: EDOXABAN TOSYLATE
     Indication: Atrial fibrillation
     Dosage: 60 MG, QD
     Route: 065
     Dates: end: 202507

REACTIONS (7)
  - Renal failure [Unknown]
  - Malignant melanoma [Unknown]
  - Rectal cancer [Unknown]
  - Breast cancer [Unknown]
  - Pulmonary embolism [Unknown]
  - Hip surgery [Recovering/Resolving]
  - Incorrect dose administered [Recovered/Resolved]

NARRATIVE: CASE EVENT DATE: 20250701
